APPROVED DRUG PRODUCT: DORYX MPC
Active Ingredient: DOXYCYCLINE HYCLATE
Strength: EQ 60MG BASE **Federal Register determination that product was not discontinued or withdrawn for safety or effectiveness reasons**
Dosage Form/Route: TABLET, DELAYED RELEASE;ORAL
Application: N050795 | Product #007
Applicant: MAYNE PHARMA INTERNATIONAL PTY LTD
Approved: May 20, 2016 | RLD: Yes | RS: No | Type: RX

PATENTS:
Patent 9295652 | Expires: Oct 23, 2034
Patent 9511031 | Expires: Oct 23, 2034
Patent 8715724 | Expires: Feb 3, 2028
Patent 9446057 | Expires: Dec 23, 2034